FAERS Safety Report 9723478 (Version 1)
Quarter: 2013Q4

REPORT INFORMATION
  Report Type: Spontaneous
  Country: US (occurrence: US)
  Receive Date: 20131202
  Receipt Date: 20131202
  Transmission Date: 20140711
  Serious: Yes (Other)
  Sender: FDA-Public Use
  Company Number: US-PFIZER INC-2013341224

PATIENT
  Age: 72 Year
  Sex: Female
  Weight: 63.49 kg

DRUGS (2)
  1. TRIAZOLAM [Suspect]
     Indication: SLEEP DISORDER
     Dosage: UNK
  2. AMBIEN [Suspect]
     Indication: SLEEP DISORDER
     Dosage: UNK

REACTIONS (7)
  - Cardiac disorder [Unknown]
  - Back disorder [Unknown]
  - Malaise [Unknown]
  - Gastric disorder [Unknown]
  - Ulcer [Unknown]
  - Weight decreased [Unknown]
  - Nightmare [Unknown]
